FAERS Safety Report 14264977 (Version 1)
Quarter: 2017Q4

REPORT INFORMATION
  Report Type: Spontaneous
  Country: IT (occurrence: IT)
  Receive Date: 20171208
  Receipt Date: 20171208
  Transmission Date: 20180321
  Serious: Yes (Hospitalization)
  Sender: FDA-Public Use
  Company Number: IT-SA-2017SA238463

PATIENT
  Age: 59 Year
  Sex: Female

DRUGS (2)
  1. CLOPIDOGREL BISULFATE. [Suspect]
     Active Substance: CLOPIDOGREL BISULFATE
     Indication: THROMBOSIS PROPHYLAXIS
     Route: 048
  2. TRENTAL [Concomitant]
     Active Substance: PENTOXIFYLLINE
     Route: 048

REACTIONS (2)
  - Dyspepsia [Recovered/Resolved]
  - Haemoptysis [Recovered/Resolved]

NARRATIVE: CASE EVENT DATE: 20171009
